FAERS Safety Report 5893002-X (Version None)
Quarter: 2008Q3

REPORT INFORMATION
  Report Type: 
  Country: None (occurrence: None)
  Receive Date: 20080923
  Receipt Date: 20080508
  Transmission Date: 20090109
  Serious: No
  Sender: FDA-Public Use
  Company Number: US-ASTRAZENECA-2007UW12072

PATIENT
  Age: 651 Month
  Sex: Male
  Weight: 127.3 kg

DRUGS (3)
  1. SEROQUEL [Suspect]
     Indication: BIPOLAR DISORDER
     Route: 048
     Dates: start: 20051003, end: 20060315
  2. SEROQUEL [Suspect]
     Indication: DEPRESSION
     Route: 048
     Dates: start: 20051003, end: 20060315
  3. EFFEXOR XR [Concomitant]

REACTIONS (2)
  - ARTHROPATHY [None]
  - TYPE 2 DIABETES MELLITUS [None]
